FAERS Safety Report 6233266-6 (Version None)
Quarter: 2009Q2

REPORT INFORMATION
  Report Type: 
  Country: None (occurrence: None)
  Receive Date: 20090617
  Receipt Date: 20090612
  Transmission Date: 20091009
  Serious: Yes (Hospitalization, Other)
  Sender: FDA-Public Use
  Company Number: US-AVENTIS-200911632US

PATIENT
  Sex: Female
  Weight: 100 kg

DRUGS (15)
  1. LOVENOX [Suspect]
     Dates: start: 20081021, end: 20081001
  2. LOVENOX [Suspect]
     Indication: THROMBOSIS PROPHYLAXIS
     Dates: start: 20081021, end: 20081001
  3. BENICAR [Concomitant]
     Dosage: DOSE: UNK
  4. ALBUTEROL [Concomitant]
     Dosage: DOSE: UNK
     Route: 055
  5. SINGULAIR [Concomitant]
     Dosage: DOSE: UNK
  6. CRESTOR [Concomitant]
     Dosage: DOSE: UNK
  7. CARDIZEM LA [Concomitant]
     Dosage: DOSE: UNK
  8. CATAPRES                           /00171101/ [Concomitant]
     Dosage: DOSE: UNK
  9. APIDRA [Concomitant]
     Dosage: DOSE: UNK
     Route: 058
  10. DRUG USED IN DIABETES [Concomitant]
     Dosage: DOSE: UNK
     Route: 051
  11. NIACIN [Concomitant]
     Dosage: DOSE: UNK
  12. VIT D [Concomitant]
     Indication: VITAMIN D DEFICIENCY
     Dosage: DOSE: UNK
  13. MULTI-VITAMINS [Concomitant]
     Dosage: DOSE: UNK
  14. VICODIN [Concomitant]
     Dosage: DOSE: UNK
  15. ANAESTHETICS [Concomitant]
     Dosage: DOSE: UNK
     Route: 024

REACTIONS (9)
  - BLOOD GLUCOSE INCREASED [None]
  - COLLAPSE OF LUNG [None]
  - CYSTITIS [None]
  - DRUG INEFFECTIVE [None]
  - DYSPNOEA [None]
  - MUSCLE SPASMS [None]
  - PNEUMONIA [None]
  - PULMONARY EMBOLISM [None]
  - PYREXIA [None]
